FAERS Safety Report 8844932 (Version 2)
Quarter: 2012Q4

REPORT INFORMATION
  Report Type: 
  Country: TR (occurrence: TR)
  Receive Date: 20121017
  Receipt Date: 20121022
  Transmission Date: 20130627
  Serious: Yes (Hospitalization, Other)
  Sender: FDA-Public Use
  Company Number: PHHY2012TR091190

PATIENT
  Age: 46 Year
  Sex: Male

DRUGS (5)
  1. CLOZAPINE [Suspect]
     Indication: SCHIZOPHRENIA, RESIDUAL TYPE
     Dosage: 200 mg (for 10 years)
  2. CLOZAPINE [Suspect]
     Dosage: 100 mg, UNK
  3. CLOZAPINE [Suspect]
     Dosage: 200 mg, UNK
  4. CLOZAPINE [Suspect]
     Dosage: 250 mg, UNK
  5. ANTIBIOTICS [Concomitant]

REACTIONS (10)
  - Schizophrenia, catatonic type [Recovered/Resolved]
  - Decubitus ulcer [Unknown]
  - Pseudomonas infection [Unknown]
  - Persecutory delusion [Recovered/Resolved]
  - Hallucinations, mixed [Recovered/Resolved]
  - Hypophagia [Recovered/Resolved]
  - Insomnia [Unknown]
  - Body temperature fluctuation [Unknown]
  - Tachycardia [Unknown]
  - White blood cell count increased [Recovered/Resolved]
